FAERS Safety Report 15535525 (Version 1)
Quarter: 2018Q4

REPORT INFORMATION
  Report Type: Spontaneous
  Country: US (occurrence: US)
  Receive Date: 20181022
  Receipt Date: 20181022
  Transmission Date: 20190205
  Serious: No
  Sender: FDA-Public Use
  Company Number: US-BAYER-2018-195942

PATIENT
  Age: 7 Year
  Sex: Female

DRUGS (2)
  1. CLARITIN [Suspect]
     Active Substance: LORATADINE
     Indication: HYPERSENSITIVITY
     Dosage: 1 DF, UNK
     Route: 048
  2. CLARITIN [Suspect]
     Active Substance: LORATADINE
     Indication: NASOPHARYNGITIS
     Dosage: 5 DF, ONCE
     Route: 048
     Dates: start: 20181020, end: 20181020

REACTIONS (2)
  - Failure of child resistant mechanism for pharmaceutical product [None]
  - Accidental exposure to product by child [Unknown]

NARRATIVE: CASE EVENT DATE: 20181020
